FAERS Safety Report 6762558-7 (Version None)
Quarter: 2010Q2

REPORT INFORMATION
  Report Type: 
  Country: None (occurrence: None)
  Receive Date: 20100609
  Receipt Date: 20100526
  Transmission Date: 20101027
  Serious: Yes (Death, Life-Threatening, Hospitalization)
  Sender: FDA-Public Use
  Company Number: JP-PFIZER INC-2010067684

PATIENT
  Age: 85 Year
  Sex: Male

DRUGS (2)
  1. AZULFIDINE [Suspect]
     Dosage: 500 MG, 2X/DAY
     Route: 048
     Dates: end: 20100524
  2. METHOTREXATE [Suspect]
     Dosage: 5 MG, 1X/DAY
     Route: 048
     Dates: end: 20100524

REACTIONS (3)
  - INFECTION [None]
  - PANCYTOPENIA [None]
  - STOMATITIS [None]
